APPROVED DRUG PRODUCT: VARDENAFIL HYDROCHLORIDE
Active Ingredient: VARDENAFIL HYDROCHLORIDE
Strength: EQ 20MG BASE
Dosage Form/Route: TABLET;ORAL
Application: A208960 | Product #004 | TE Code: AB
Applicant: ZYDUS PHARMACEUTICALS USA INC
Approved: Oct 31, 2018 | RLD: No | RS: Yes | Type: RX